FAERS Safety Report 26100166 (Version 1)
Quarter: 2025Q4

REPORT INFORMATION
  Report Type: Spontaneous
  Country: CN (occurrence: CN)
  Receive Date: 20251128
  Receipt Date: 20251128
  Transmission Date: 20260117
  Serious: Yes (Death)
  Sender: MERCK SHARP & DOHME LLC
  Company Number: CN-009507513-2342905

PATIENT
  Age: 72 Year
  Sex: Male

DRUGS (2)
  1. PEMBROLIZUMAB [Suspect]
     Active Substance: PEMBROLIZUMAB
     Dosage: SECOND SELF-MEDICATION
     Dates: start: 202509
  2. PEMBROLIZUMAB [Suspect]
     Active Substance: PEMBROLIZUMAB
     Dates: start: 202508

REACTIONS (8)
  - Immunodeficiency [Fatal]
  - Drug ineffective [Unknown]
  - Disease complication [Fatal]
  - White blood cell count decreased [Unknown]
  - Blood glucose increased [Unknown]
  - Multiple organ dysfunction syndrome [Fatal]
  - Ketoacidosis [Fatal]
  - Impaired insulin secretion [Fatal]

NARRATIVE: CASE EVENT DATE: 20250101
